FAERS Safety Report 6317459-5 (Version None)
Quarter: 2009Q3

REPORT INFORMATION
  Report Type: 
  Country: None (occurrence: None)
  Receive Date: 20090820
  Receipt Date: 20090820
  Transmission Date: 20100115
  Serious: Yes (Death, Hospitalization)
  Sender: FDA-Public Use
  Company Number: None

PATIENT
  Sex: Male
  Weight: 74.8435 kg

DRUGS (3)
  1. PLAVIX [Suspect]
     Indication: STENT PLACEMENT
     Dosage: 75 MG 1 A DAY
     Dates: start: 20090526, end: 20090630
  2. COUMADIN [Suspect]
     Dosage: 1 A DAY FOR 5-6 YEARS
  3. ASPIRIN [Suspect]
     Dosage: 1 A DAY FOR 5-6 YEARS

REACTIONS (5)
  - ASTHENIA [None]
  - BODY TEMPERATURE INCREASED [None]
  - DISORIENTATION [None]
  - HEADACHE [None]
  - VOMITING [None]
